APPROVED DRUG PRODUCT: DANTRIUM
Active Ingredient: DANTROLENE SODIUM
Strength: 50MG
Dosage Form/Route: CAPSULE;ORAL
Application: N017443 | Product #003 | TE Code: AB
Applicant: PH HEALTH LTD
Approved: Approved Prior to Jan 1, 1982 | RLD: Yes | RS: No | Type: RX